FAERS Safety Report 9359272 (Version 3)
Quarter: 2013Q3

REPORT INFORMATION
  Report Type: Spontaneous
  Country: FR (occurrence: FR)
  Receive Date: 20130620
  Receipt Date: 20130827
  Transmission Date: 20140515
  Serious: Yes (Other)
  Sender: FDA-Public Use
  Company Number: FR-GILEAD-2013-0077325

PATIENT
  Age: 40 Year
  Sex: Male

DRUGS (1)
  1. EVIPLERA [Suspect]
     Indication: HIV TEST POSITIVE
     Dosage: UNK
     Dates: start: 20130502, end: 20130606

REACTIONS (1)
  - Hepatitis [Recovering/Resolving]
